FAERS Safety Report 6827369-2 (Version None)
Quarter: 2010Q3

REPORT INFORMATION
  Report Type: 
  Country: None (occurrence: None)
  Receive Date: 20100709
  Receipt Date: 20070109
  Transmission Date: 20110219
  Serious: No
  Sender: FDA-Public Use
  Company Number: US-PFIZER INC-2007003419

PATIENT
  Age: 66 Year
  Sex: Female
  Weight: 47.63 kg

DRUGS (9)
  1. CHANTIX [Suspect]
     Indication: SMOKING CESSATION THERAPY
     Dates: start: 20060101, end: 20060928
  2. ALPRAZOLAM [Concomitant]
     Dates: start: 19890101
  3. IMIPRAMINE [Concomitant]
  4. LOVASTATIN [Concomitant]
     Indication: BLOOD CHOLESTEROL INCREASED
  5. NIFEDIPINE [Concomitant]
  6. ATENOLOL [Concomitant]
  7. ALBUTEROL [Concomitant]
     Route: 055
  8. SPIRIVA [Concomitant]
     Route: 055
  9. ACTONEL [Concomitant]
     Dates: end: 20060101

REACTIONS (2)
  - CONSTIPATION [None]
  - NAUSEA [None]
